FAERS Safety Report 9202863 (Version 1)
Quarter: 2013Q2

REPORT INFORMATION
  Report Type: Spontaneous
  Country: US (occurrence: US)
  Receive Date: 20130402
  Receipt Date: 20130402
  Transmission Date: 20140414
  Serious: Yes (Hospitalization, Other)
  Sender: FDA-Public Use
  Company Number: US-AMGEN-USASP2013021645

PATIENT
  Age: 60 Year
  Sex: Female

DRUGS (1)
  1. ENBREL [Suspect]
     Indication: RHEUMATOID ARTHRITIS
     Dosage: 50 MG, UNK
     Dates: start: 20000801

REACTIONS (10)
  - Musculoskeletal pain [Not Recovered/Not Resolved]
  - Breast calcifications [Recovered/Resolved]
  - Breast disorder female [Recovered/Resolved]
  - Delirium [Recovered/Resolved]
  - Pneumonia [Recovered/Resolved]
  - Upper respiratory tract infection [Recovered/Resolved]
  - Dysuria [Recovered/Resolved]
  - Herpes zoster [Not Recovered/Not Resolved]
  - Injection site pain [Recovered/Resolved]
  - Injection site pruritus [Not Recovered/Not Resolved]
